FAERS Safety Report 9476905 (Version 2)
Quarter: 2013Q3

REPORT INFORMATION
  Report Type: Report from Study
  Country: GB (occurrence: GB)
  Receive Date: 20130826
  Receipt Date: 20130830
  Transmission Date: 20140515
  Serious: Yes (Life-Threatening, Hospitalization)
  Sender: FDA-Public Use
  Company Number: GB-GLAXOSMITHKLINE-B0916593A

PATIENT
  Age: 29 Year
  Sex: Female
  Weight: 52.3 kg

DRUGS (2)
  1. DABRAFENIB [Suspect]
     Indication: METASTATIC MALIGNANT MELANOMA
     Route: 048
  2. TRAMETINIB [Suspect]
     Indication: METASTATIC MALIGNANT MELANOMA
     Route: 048

REACTIONS (7)
  - Small intestinal perforation [Recovering/Resolving]
  - Abdominal pain [Unknown]
  - Vomiting [Unknown]
  - Pyrexia [Unknown]
  - Hypotension [Unknown]
  - Tachycardia [Unknown]
  - Oliguria [Unknown]
